FAERS Safety Report 12504713 (Version 2)
Quarter: 2016Q3

REPORT INFORMATION
  Report Type: Report from Study
  Country: BR (occurrence: BR)
  Receive Date: 20160628
  Receipt Date: 20160823
  Transmission Date: 20161109
  Serious: Yes (Hospitalization, Other)
  Sender: FDA-Public Use
  Company Number: BR-JNJFOC-20160618043

PATIENT
  Age: 55 Year
  Sex: Female
  Weight: 56 kg

DRUGS (4)
  1. CALCIUM [Concomitant]
     Active Substance: CALCIUM
     Route: 065
  2. SIMPONI [Suspect]
     Active Substance: GOLIMUMAB
     Indication: RHEUMATOID ARTHRITIS
     Route: 058
     Dates: start: 20140501
  3. RANITIDINE. [Concomitant]
     Active Substance: RANITIDINE
     Route: 065
  4. PREDNISONE. [Concomitant]
     Active Substance: PREDNISONE
     Route: 065

REACTIONS (5)
  - Pelvic inflammatory disease [Unknown]
  - Rheumatic fever [Unknown]
  - Inflammation [Unknown]
  - Drug effect incomplete [Unknown]
  - Bone disorder [Unknown]

NARRATIVE: CASE EVENT DATE: 2016
